FAERS Safety Report 7119206-6 (Version None)
Quarter: 2010Q4

REPORT INFORMATION
  Report Type: 
  Country: None (occurrence: None)
  Receive Date: 20101123
  Receipt Date: 20101118
  Transmission Date: 20110411
  Serious: Yes (Hospitalization)
  Sender: FDA-Public Use
  Company Number: DE-ABBOTT-10P-062-0686900-00

PATIENT
  Age: 66 Year
  Sex: Female

DRUGS (10)
  1. ERGENYL CHRONO TABLETS [Interacting]
     Indication: BIPOLAR I DISORDER
     Route: 048
     Dates: start: 20100414, end: 20100623
  2. ERGENYL CHRONO TABLETS [Interacting]
     Route: 048
     Dates: start: 20100624, end: 20100726
  3. HYDROCHLOROTHIAZIDE [Interacting]
     Indication: PRODUCT USED FOR UNKNOWN INDICATION
     Route: 048
     Dates: start: 20100501, end: 20100622
  4. HYDROCHLOROTHIAZIDE [Interacting]
     Route: 048
     Dates: start: 20100623, end: 20100823
  5. SEROQUEL [Suspect]
     Indication: BIPOLAR I DISORDER
     Route: 048
     Dates: start: 20100519
  6. CIATYL [Suspect]
     Indication: BIPOLAR I DISORDER
     Route: 048
     Dates: start: 20100519, end: 20100603
  7. LEVOTHYROXINE SODIUM [Concomitant]
     Indication: PRODUCT USED FOR UNKNOWN INDICATION
  8. CARVEDILOL [Concomitant]
     Indication: PRODUCT USED FOR UNKNOWN INDICATION
  9. DOXAZOSIN MESYLATE [Concomitant]
     Indication: PRODUCT USED FOR UNKNOWN INDICATION
  10. ATACAND [Concomitant]
     Indication: PRODUCT USED FOR UNKNOWN INDICATION

REACTIONS (3)
  - DRUG INTERACTION [None]
  - HYPONATRAEMIA [None]
  - MANIA [None]
